FAERS Safety Report 4263276-X (Version None)
Quarter: 2004Q1

REPORT INFORMATION
  Report Type: 
  Country: None (occurrence: None)
  Receive Date: 20040104
  Receipt Date: 20040104
  Transmission Date: 20041129
  Serious: Yes (Other)
  Sender: FDA-Public Use
  Company Number: None

PATIENT
  Age: 48 Year
  Sex: Male
  Weight: 76.6579 kg

DRUGS (1)
  1. VERAPAMIL [Suspect]
     Dosage: 240 MG BID PO
     Route: 048
     Dates: start: 20030901, end: 20031202

REACTIONS (1)
  - GYNAECOMASTIA [None]
